FAERS Safety Report 4355724-1 (Version None)
Quarter: 2004Q2

REPORT INFORMATION
  Report Type: 
  Country: None (occurrence: None)
  Receive Date: 20040510
  Receipt Date: 20040510
  Transmission Date: 20050107
  Serious: Yes (Other)
  Sender: FDA-Public Use
  Company Number: None

PATIENT
  Sex: Female
  Weight: 108.8633 kg

DRUGS (1)
  1. LIPITOR [Suspect]
     Dosage: 10 MG / DAILY

REACTIONS (3)
  - MOBILITY DECREASED [None]
  - MUSCLE CRAMP [None]
  - NEUROPATHY [None]
